FAERS Safety Report 10143981 (Version 3)
Quarter: 2014Q2

REPORT INFORMATION
  Report Type: Spontaneous
  Country: JP (occurrence: JP)
  Receive Date: 20140430
  Receipt Date: 20140618
  Transmission Date: 20141212
  Serious: Yes (Disabling, Other)
  Sender: FDA-Public Use
  Company Number: JP-TEVA-475143ISR

PATIENT
  Age: 64 Year
  Sex: Female

DRUGS (12)
  1. RANITIDINE TABLET 150MG ^TAIYO^ ,TAB,150MG [Suspect]
     Indication: GASTRIC ULCER
     Dosage: 300 MILLIGRAM DAILY;
     Route: 048
     Dates: start: 20081201
  2. PREDNISOLONE TABLETS [Concomitant]
     Indication: INFLAMMATION
     Dosage: .5 MILLIGRAM DAILY;
     Route: 048
     Dates: start: 200808
  3. URDENACIN [Concomitant]
     Indication: HEPATIC FUNCTION ABNORMAL
     Dosage: 300 MILLIGRAM DAILY;
     Route: 048
     Dates: start: 200808
  4. BROTIZOLAM [Concomitant]
     Indication: INSOMNIA
     Dosage: .25 MILLIGRAM DAILY;
     Route: 048
     Dates: start: 200808
  5. MAGLAX TAB. 330MG [Concomitant]
     Indication: CONSTIPATION
     Dosage: 330 MILLIGRAM DAILY;
     Route: 048
     Dates: start: 200808
  6. BLOPRESS TABLETS 4 [Concomitant]
     Indication: HYPERTENSION
     Dosage: 4 MILLIGRAM DAILY;
     Route: 048
     Dates: start: 200808, end: 20130918
  7. BLOPRESS TABLETS 4 [Concomitant]
     Dosage: 8 MILLIGRAM DAILY;
     Route: 048
     Dates: start: 200808, end: 20130918
  8. MERCAZOLE [Concomitant]
     Indication: HYPERTHYROIDISM
     Dosage: 30 MILLIGRAM DAILY;
     Dates: start: 20131207
  9. LENDORMIN TABLETS [Concomitant]
     Indication: INSOMNIA
     Route: 048
     Dates: end: 20080928
  10. LENDORMIN TABLETS [Concomitant]
     Dosage: REPLACED WITH HALCION
     Route: 048
     Dates: end: 20080928
  11. LENDORMIN TABLETS [Concomitant]
     Route: 048
     Dates: start: 20131011
  12. HALCION TABLETS 0.25 MG [Concomitant]
     Indication: INSOMNIA
     Dosage: REPLACED WITH LENDORMIN 0.25MG
     Route: 048
     Dates: start: 20131011

REACTIONS (11)
  - Eyelid oedema [Not Recovered/Not Resolved]
  - Sudden hearing loss [Recovered/Resolved]
  - Hyperthyroidism [Unknown]
  - Visual field defect [Unknown]
  - Blood pressure fluctuation [Unknown]
  - Insomnia [Unknown]
  - Pruritus generalised [Unknown]
  - Visual impairment [Unknown]
  - Chest pain [Unknown]
  - Eye disorder [Unknown]
  - Liver disorder [Unknown]
